FAERS Safety Report 12880937 (Version 1)
Quarter: 2016Q4

REPORT INFORMATION
  Report Type: Spontaneous
  Country: US (occurrence: US)
  Receive Date: 20161025
  Receipt Date: 20161025
  Transmission Date: 20170207
  Serious: Yes (Hospitalization)
  Sender: FDA-Public Use
  Company Number: None

PATIENT
  Age: 96 Year
  Sex: Female
  Weight: 91.5 kg

DRUGS (11)
  1. VITAMIN D3 [Concomitant]
     Active Substance: CHOLECALCIFEROL
  2. APAP [Concomitant]
     Active Substance: ACETAMINOPHEN
  3. HUMULIN 70/30 [Suspect]
     Active Substance: INSULIN HUMAN
     Indication: DIABETES MELLITUS
     Dosage: 10UNITS NIGHTLY SQ?CHRONIC
     Route: 058
  4. ATORVASTATIN [Concomitant]
     Active Substance: ATORVASTATIN
  5. HUMULIN 70/30 [Concomitant]
     Active Substance: INSULIN HUMAN
     Indication: DIABETES MELLITUS
     Dosage: CHRONIC
     Route: 058
  6. ASA [Concomitant]
     Active Substance: ASPIRIN
  7. LIDOCAINE. [Concomitant]
     Active Substance: LIDOCAINE
  8. ZETIA [Concomitant]
     Active Substance: EZETIMIBE
  9. COLACE [Concomitant]
     Active Substance: DOCUSATE SODIUM
  10. LASIX [Concomitant]
     Active Substance: FUROSEMIDE
  11. SYNTHROID [Concomitant]
     Active Substance: LEVOTHYROXINE SODIUM

REACTIONS (4)
  - Lethargy [None]
  - Hypoglycaemia [None]
  - Failure to thrive [None]
  - Decreased appetite [None]

NARRATIVE: CASE EVENT DATE: 20150701
